FAERS Safety Report 6068025-0 (Version None)
Quarter: 2009Q1

REPORT INFORMATION
  Report Type: 
  Country: None (occurrence: None)
  Receive Date: 20090206
  Receipt Date: 20090203
  Transmission Date: 20090719
  Serious: Yes (Hospitalization)
  Sender: FDA-Public Use
  Company Number: US-BRISTOL-MYERS SQUIBB COMPANY-14492045

PATIENT
  Age: 88 Year
  Sex: Female
  Weight: 53 kg

DRUGS (6)
  1. WARFARIN SODIUM [Suspect]
     Indication: ATRIAL FIBRILLATION
  2. COUMADIN [Suspect]
     Indication: ATRIAL FIBRILLATION
     Dosage: DOSE DECREASED TO 2MG DAILY ON 15DEC08
  3. DIGOXIN [Concomitant]
     Dosage: GIVEN FOR YEARS
  4. METFORMIN HCL [Concomitant]
     Dosage: GIVEN FOR YEARS
  5. GLYBURIDE [Concomitant]
     Dosage: GIVEN FOR YEARS
  6. BENAZEPRIL HYDROCHLORIDE [Concomitant]
     Dosage: 1 DOSAGE FORM = 1/2 TABLET

REACTIONS (3)
  - CEREBROVASCULAR ACCIDENT [None]
  - HYPERTENSION [None]
  - PROTHROMBIN LEVEL DECREASED [None]
